FAERS Safety Report 7908569-7 (Version None)
Quarter: 2011Q4

REPORT INFORMATION
  Report Type: 
  Country: None (occurrence: None)
  Receive Date: 20111111
  Receipt Date: 20111107
  Transmission Date: 20120403
  Serious: Yes (Other)
  Sender: FDA-Public Use
  Company Number: DE-PFIZER INC-2011271841

PATIENT
  Age: 84 Year
  Sex: Male

DRUGS (1)
  1. ATORVASTATIN CALCIUM [Suspect]
     Dosage: 10 MG, UNK
     Dates: start: 20010101

REACTIONS (6)
  - DEPRESSED MOOD [None]
  - MUSCULAR WEAKNESS [None]
  - BODY TEMPERATURE INCREASED [None]
  - NOCTURNAL DYSPNOEA [None]
  - ERUCTATION [None]
  - INSOMNIA [None]
